FAERS Safety Report 22660492 (Version 1)
Quarter: 2023Q2

REPORT INFORMATION
  Report Type: Spontaneous
  Country: US (occurrence: US)
  Receive Date: 20230630
  Receipt Date: 20230630
  Transmission Date: 20230722
  Serious: No
  Sender: FDA-Public Use
  Company Number: US-JAZZ PHARMACEUTICALS-2022-US-024321

PATIENT
  Sex: Female
  Weight: 61 kg

DRUGS (1)
  1. EPIDIOLEX [Suspect]
     Active Substance: CANNABIDIOL
     Indication: Product used for unknown indication
     Dosage: WEEK 1 TAKE 1 ML BY MOUTH TWICE A DAY THEN WEEK 2 TAKE 2 ML TWICE A DAY THEN WEEK 3 TAKE 3 ML TWICE
     Route: 048

REACTIONS (1)
  - Insomnia [Unknown]
